FAERS Safety Report 9008802 (Version 2)
Quarter: 2013Q1

REPORT INFORMATION
  Report Type: Report from Study
  Country: UG (occurrence: UG)
  Receive Date: 20130111
  Receipt Date: 20130131
  Transmission Date: 20140127
  Serious: Yes (Life-Threatening)
  Sender: FDA-Public Use
  Company Number: UG-ABBOTT-13P-165-1033266-00

PATIENT
  Age: 20 Year
  Sex: Female

DRUGS (6)
  1. ALUVIA [Suspect]
     Indication: HIV INFECTION
     Dosage: 400MG/100MG
     Route: 048
     Dates: start: 20111215
  2. AZT [Concomitant]
     Indication: HIV INFECTION
     Dates: start: 20111215, end: 20120424
  3. 3TC [Concomitant]
     Indication: HIV INFECTION
     Dates: start: 20111215
  4. SEPTRIN [Concomitant]
     Indication: PRODUCT USED FOR UNKNOWN INDICATION
     Dates: start: 20111215
  5. TENOFOVIR DISOPROXIL FUMARATE [Concomitant]
     Indication: HIV INFECTION
     Dates: start: 20120424
  6. MULTIVITAMINS [Concomitant]
     Indication: PRODUCT USED FOR UNKNOWN INDICATION

REACTIONS (1)
  - Anaemia [Unknown]
